FAERS Safety Report 4640582-8 (Version None)
Quarter: 2005Q2

REPORT INFORMATION
  Report Type: 
  Country: None (occurrence: None)
  Receive Date: 20050418
  Receipt Date: 20050408
  Transmission Date: 20051028
  Serious: Yes (Hospitalization)
  Sender: FDA-Public Use
  Company Number: 2004SP000289

PATIENT
  Age: 55 Year
  Sex: Female
  Weight: 58.9676 kg

DRUGS (21)
  1. XOPENEX [Suspect]
     Indication: ASTHMA
     Dosage: 1.25 MG; Q6H; INHALATION
     Route: 055
     Dates: start: 20041107, end: 20041109
  2. ENOXAPARIN SODIUM [Concomitant]
  3. FEXOFENADINE HCL [Concomitant]
  4. FLUTICASONE PROPIONATE [Concomitant]
  5. FLUTICASONE/SALMETEROL [Concomitant]
  6. FUROSEMIDE [Concomitant]
  7. GABAPENTIN [Concomitant]
  8. METHYLPREDNISONE [Concomitant]
  9. MONTELUKAST [Concomitant]
  10. PANTOPRAZOLE SODIUM [Concomitant]
  11. ALBUTEROL [Concomitant]
  12. THEOPHYLLINE [Concomitant]
  13. ACETAMNOPHEN [Concomitant]
  14. LORAZEPAM [Concomitant]
  15. PROMETHAZINE [Concomitant]
  16. ZOLPIDEM TARTRATE [Concomitant]
  17. FLUTICASONE PROPIONATE [Concomitant]
  18. SODIUM CHLORIDE [Concomitant]
  19. METHYLPREDNISONE [Concomitant]
  20. IPRATROPIUM BROMIDE [Concomitant]
  21. D5 WITH POTASSIUM [Concomitant]

REACTIONS (4)
  - BRONCHIAL OBSTRUCTION [None]
  - CHRONIC OBSTRUCTIVE AIRWAYS DISEASE EXACERBATED [None]
  - LUNG INFILTRATION [None]
  - RESPIRATORY FAILURE [None]
